FAERS Safety Report 18739274 (Version 1)
Quarter: 2021Q1

REPORT INFORMATION
  Report Type: Spontaneous
  Country: US (occurrence: US)
  Receive Date: 20210114
  Receipt Date: 20210114
  Transmission Date: 20210419
  Serious: No
  Sender: FDA-Public Use
  Company Number: US-BAYER-2021-023540

PATIENT
  Age: 35 Year
  Sex: Male

DRUGS (3)
  1. GADAVIST [Suspect]
     Active Substance: GADOBUTROL
     Indication: MAGNETIC RESONANCE IMAGING BRAIN
     Dosage: 13 ML, ONCE
     Route: 042
     Dates: start: 20201230, end: 20201230
  2. GADAVIST [Suspect]
     Active Substance: GADOBUTROL
     Indication: MUSCLE TWITCHING
  3. GADAVIST [Suspect]
     Active Substance: GADOBUTROL
     Indication: HEADACHE

REACTIONS (4)
  - Abdominal discomfort [Unknown]
  - Skin burning sensation [Unknown]
  - Pruritus [Unknown]
  - Urticaria [Unknown]

NARRATIVE: CASE EVENT DATE: 20201230
